FAERS Safety Report 11983891 (Version 2)
Quarter: 2016Q1

REPORT INFORMATION
  Report Type: Spontaneous
  Country: US (occurrence: US)
  Receive Date: 20160201
  Receipt Date: 20160205
  Transmission Date: 20160526
  Serious: Yes (Other)
  Sender: FDA-Public Use
  Company Number: US-PURDUE PHARMA-USA-2016-0128688

PATIENT
  Sex: Male

DRUGS (1)
  1. OXYCONTIN [Suspect]
     Active Substance: OXYCODONE HYDROCHLORIDE
     Indication: PAIN
     Dosage: 30 MG, TID
     Route: 048
     Dates: end: 201601

REACTIONS (8)
  - Drug withdrawal convulsions [Unknown]
  - Retching [Unknown]
  - Staphylococcal infection [Recovered/Resolved]
  - Road traffic accident [Unknown]
  - Back pain [Unknown]
  - Surgery [Unknown]
  - Drug dependence [Unknown]
  - Rotator cuff repair [Unknown]
